FAERS Safety Report 9271310 (Version 1)
Quarter: 2013Q2

REPORT INFORMATION
  Report Type: Spontaneous
  Country: FR (occurrence: FR)
  Receive Date: 20130506
  Receipt Date: 20130506
  Transmission Date: 20140414
  Serious: Yes (Death, Hospitalization, Other)
  Sender: FDA-Public Use
  Company Number: FR-JNJFOC-20130500751

PATIENT
  Age: 83 Year
  Sex: Male

DRUGS (9)
  1. XARELTO [Suspect]
     Indication: CEREBROVASCULAR ACCIDENT PROPHYLAXIS
     Route: 048
     Dates: start: 201210, end: 201304
  2. XARELTO [Suspect]
     Indication: ATRIAL FIBRILLATION
     Route: 048
     Dates: start: 201210, end: 201304
  3. LASILIX [Concomitant]
     Route: 065
  4. CYMBALTA [Concomitant]
     Route: 065
  5. SPIRIVA [Concomitant]
     Route: 065
  6. AMIODARONE [Concomitant]
     Route: 065
  7. XATRAL [Concomitant]
     Route: 065
  8. ALLOPURINOL [Concomitant]
     Route: 065
  9. OXYGEN [Concomitant]
     Route: 045

REACTIONS (3)
  - Fall [Fatal]
  - Wound haemorrhage [Recovered/Resolved]
  - Wound haemorrhage [Fatal]
